FAERS Safety Report 4534237-8 (Version None)
Quarter: 2004Q4

REPORT INFORMATION
  Report Type: 
  Country: None (occurrence: None)
  Receive Date: 20041214
  Receipt Date: 20040825
  Transmission Date: 20050328
  Serious: No
  Sender: FDA-Public Use
  Company Number: 2004231943US

PATIENT
  Age: 69 Year
  Sex: Female
  Weight: 90.7 kg

DRUGS (4)
  1. BEXTRA [Suspect]
     Indication: LOCALISED OSTEOARTHRITIS
     Dosage: 10 MG QD ORAL
     Route: 048
     Dates: start: 20040814
  2. LISINOPRIL [Concomitant]
  3. ZANTAC [Concomitant]
  4. RHINOCORT [Concomitant]

REACTIONS (1)
  - TONGUE BLISTERING [None]
